FAERS Safety Report 17390327 (Version 2)
Quarter: 2020Q2

REPORT INFORMATION
  Report Type: Spontaneous
  Country: US (occurrence: US)
  Receive Date: 20200207
  Receipt Date: 20200425
  Transmission Date: 20200713
  Serious: No
  Sender: FDA-Public Use
  Company Number: NVSC2020US032325

PATIENT
  Sex: Female

DRUGS (1)
  1. COSENTYX [Suspect]
     Active Substance: SECUKINUMAB
     Indication: PALMOPLANTAR PUSTULOSIS
     Dosage: 300 MG/KG, QMO
     Route: 058
     Dates: start: 201910, end: 202002

REACTIONS (2)
  - Palmoplantar pustulosis [Not Recovered/Not Resolved]
  - Eczema [Unknown]
